FAERS Safety Report 15380796 (Version 1)
Quarter: 2018Q3

REPORT INFORMATION
  Report Type: Spontaneous
  Country: US (occurrence: US)
  Receive Date: 20180913
  Receipt Date: 20180913
  Transmission Date: 20181010
  Serious: No
  Sender: FDA-Public Use
  Company Number: US-ASTELLAS-2017US054695

PATIENT
  Age: 76 Year
  Sex: Male

DRUGS (1)
  1. XTANDI [Suspect]
     Active Substance: ENZALUTAMIDE
     Indication: PROSTATE CANCER METASTATIC
     Route: 065
     Dates: start: 20171119

REACTIONS (6)
  - Asthenia [Unknown]
  - Musculoskeletal pain [Recovered/Resolved]
  - Hypersomnia [Unknown]
  - Arthralgia [Recovered/Resolved]
  - Fatigue [Unknown]
  - Back pain [Not Recovered/Not Resolved]
